FAERS Safety Report 9943097 (Version 3)
Quarter: 2014Q2

REPORT INFORMATION
  Report Type: Spontaneous
  Country: US (occurrence: US)
  Receive Date: 20140303
  Receipt Date: 20140609
  Transmission Date: 20141212
  Serious: Yes (Hospitalization, Other)
  Sender: FDA-Public Use
  Company Number: US-SA-2014SA025705

PATIENT
  Age: 69 Year
  Sex: Male
  Weight: 122 kg

DRUGS (7)
  1. LUMIZYME [Suspect]
     Indication: GLYCOGEN STORAGE DISEASE TYPE II
     Route: 042
     Dates: start: 20100915
  2. MVI [Concomitant]
  3. HERBAL PREPARATION [Concomitant]
  4. CALCIUM/VITAMIN D [Concomitant]
     Indication: NUTRITIONAL SUPPLEMENTATION
  5. TRAMADOL [Concomitant]
     Indication: BACK PAIN
  6. TURMERIC [Concomitant]
  7. CAPSAICIN [Concomitant]

REACTIONS (8)
  - Coronary artery occlusion [Recovered/Resolved]
  - Myocardial necrosis marker increased [Recovered/Resolved]
  - Atrial fibrillation [Recovered/Resolved]
  - Dyspnoea [Recovered/Resolved]
  - Heart rate increased [Recovered/Resolved]
  - Dizziness [Recovered/Resolved]
  - Hyperhidrosis [Recovered/Resolved]
  - Chest pain [Recovered/Resolved]
